FAERS Safety Report 12881388 (Version 3)
Quarter: 2017Q4

REPORT INFORMATION
  Report Type: Spontaneous
  Country: US (occurrence: US)
  Receive Date: 20161025
  Receipt Date: 20171123
  Transmission Date: 20180320
  Serious: No
  Sender: FDA-Public Use
  Company Number: US-JNJFOC-20161006171

PATIENT
  Age: 11 Year
  Sex: Male
  Weight: 22.5 kg

DRUGS (2)
  1. RISPERDAL [Suspect]
     Active Substance: RISPERIDONE
     Indication: AUTISM SPECTRUM DISORDER
     Dosage: VARYING DOSE OF 0.25 MG, 0.5 MG, 1.0 MG TO 3.0 MG
     Route: 048
     Dates: start: 19990122, end: 20070410
  2. RISPERDAL [Suspect]
     Active Substance: RISPERIDONE
     Indication: AUTISM SPECTRUM DISORDER
     Dosage: VARYING DOSE OF 0.25 MG, 0.5 MG, 1.0 MG TO 3.0 MG
     Route: 048
     Dates: start: 19990122, end: 20070410

REACTIONS (3)
  - Drug ineffective [Unknown]
  - Blood prolactin abnormal [Unknown]
  - Gynaecomastia [Unknown]

NARRATIVE: CASE EVENT DATE: 20070410
